FAERS Safety Report 19742985 (Version 1)
Quarter: 2021Q3

REPORT INFORMATION
  Report Type: Spontaneous
  Country: IN (occurrence: IN)
  Receive Date: 20210824
  Receipt Date: 20210824
  Transmission Date: 20211014
  Serious: Yes (Other)
  Sender: FDA-Public Use
  Company Number: NVSC2021IN191408

PATIENT

DRUGS (2)
  1. HYDROXYCHLOROQUINE SULFATE. [Suspect]
     Active Substance: HYDROXYCHLOROQUINE SULFATE
     Indication: COVID-19 PROPHYLAXIS
     Dosage: 400 MG, BID (ON DAY ONE)
     Route: 065
  2. HYDROXYCHLOROQUINE SULFATE. [Suspect]
     Active Substance: HYDROXYCHLOROQUINE SULFATE
     Dosage: 400 MG, QD (EVERY WEEK, TO BE TAKEN WITH MEALS)
     Route: 065

REACTIONS (2)
  - Electrocardiogram QT prolonged [Unknown]
  - Product use in unapproved indication [Unknown]
